FAERS Safety Report 14547233 (Version 2)
Quarter: 2018Q1

REPORT INFORMATION
  Report Type: Spontaneous
  Country: DE (occurrence: DE)
  Receive Date: 20180219
  Receipt Date: 20180309
  Transmission Date: 20180509
  Serious: Yes (Other)
  Sender: FDA-Public Use
  Company Number: DE-IPSEN BIOPHARMACEUTICALS, INC.-2018-02644

PATIENT
  Age: 57 Year
  Sex: Male

DRUGS (18)
  1. PEGYLATED LIPOSOMAL IRINOTECAN [Suspect]
     Active Substance: IRINOTECAN HYDROCHLORIDE
     Dosage: NOT REPORTED
     Route: 065
  2. PEGYLATED LIPOSOMAL IRINOTECAN [Suspect]
     Active Substance: IRINOTECAN HYDROCHLORIDE
     Indication: OFF LABEL USE
     Dosage: 370 MG
     Route: 065
     Dates: start: 20151020, end: 20151020
  3. LEUCOVORIN. [Suspect]
     Active Substance: LEUCOVORIN
     Dates: start: 20151020, end: 20151020
  4. NOVAMINSULFON [Concomitant]
     Active Substance: METAMIZOLE
  5. ATROPINE SULFATE. [Concomitant]
     Active Substance: ATROPINE SULFATE
     Dates: start: 20150822, end: 20151201
  6. PEGYLATED LIPOSOMAL IRINOTECAN [Suspect]
     Active Substance: IRINOTECAN HYDROCHLORIDE
     Indication: COLORECTAL CANCER METASTATIC
     Dosage: 370 MG
     Route: 065
     Dates: start: 20150922, end: 20150922
  7. AFLIBERCEPT [Suspect]
     Active Substance: AFLIBERCEPT
     Dosage: NOT REPORTED
     Dates: start: 20151020, end: 20151020
  8. 5-LFUOROURACIL [Suspect]
     Active Substance: FLUOROURACIL
     Dates: start: 20150922, end: 20150922
  9. AFLIBERCEPT [Suspect]
     Active Substance: AFLIBERCEPT
     Indication: COLORECTAL CANCER METASTATIC
     Dates: start: 20150922, end: 20150922
  10. AMLODIPIN [Concomitant]
     Active Substance: AMLODIPINE BESYLATE
  11. GRANISETRON [Concomitant]
     Active Substance: GRANISETRON
     Dates: start: 20150922
  12. 5-LFUOROURACIL [Suspect]
     Active Substance: FLUOROURACIL
     Indication: COLORECTAL CANCER METASTATIC
     Dates: start: 20150922, end: 20150922
  13. ALIZAPRIDE HYDROCHLORIDE [Concomitant]
     Active Substance: ALIZAPRIDE HYDROCHLORIDE
     Dates: start: 20150922
  14. SIMVASTATIN. [Concomitant]
     Active Substance: SIMVASTATIN
  15. CALCIUM PHOSPHATE [Concomitant]
     Active Substance: CALCIUM PHOSPHATE
  16. LEUCOVORIN. [Suspect]
     Active Substance: LEUCOVORIN
     Indication: COLORECTAL CANCER METASTATIC
     Dates: start: 20150922, end: 20150922
  17. 5-LFUOROURACIL [Suspect]
     Active Substance: FLUOROURACIL
     Dates: start: 20151020, end: 20151020
  18. CLOPIDOGREL [Concomitant]
     Active Substance: CLOPIDOGREL BISULFATE

REACTIONS (6)
  - Fatigue [Recovered/Resolved]
  - Dyspepsia [Recovered/Resolved]
  - Overdose [Unknown]
  - Thrombocytopenia [Recovered/Resolved]
  - Off label use [Unknown]
  - Inappropriate schedule of drug administration [Unknown]

NARRATIVE: CASE EVENT DATE: 20151020
